FAERS Safety Report 7060756-9 (Version None)
Quarter: 2010Q4

REPORT INFORMATION
  Report Type: 
  Country: None (occurrence: None)
  Receive Date: 20101025
  Receipt Date: 20101018
  Transmission Date: 20110411
  Serious: Yes (Other)
  Sender: FDA-Public Use
  Company Number: US-SANOFI-AVENTIS-2010SA058400

PATIENT
  Age: 57 Year
  Sex: Female
  Weight: 90.71 kg

DRUGS (4)
  1. LANTUS [Suspect]
     Indication: TYPE 2 DIABETES MELLITUS
     Dosage: DOSE:17 UNIT(S)
     Route: 058
     Dates: start: 20090715
  2. LANTUS [Suspect]
     Dosage: DOSE:17 UNIT(S)
     Route: 058
     Dates: start: 20090715
  3. SOLOSTAR [Suspect]
     Dates: start: 20090715
  4. SOLOSTAR [Suspect]
     Dates: start: 20090715

REACTIONS (2)
  - BLOOD GLUCOSE DECREASED [None]
  - LASER THERAPY [None]
